FAERS Safety Report 21243909 (Version 2)
Quarter: 2022Q4

REPORT INFORMATION
  Report Type: Spontaneous
  Country: US (occurrence: US)
  Receive Date: 20220823
  Receipt Date: 20221010
  Transmission Date: 20230112
  Serious: Yes (Hospitalization)
  Sender: FDA-Public Use
  Company Number: US-BIOCODEX2-2022000194

PATIENT
  Age: 13 Year
  Sex: Male
  Weight: 35.4 kg

DRUGS (5)
  1. DIACOMIT [Suspect]
     Active Substance: STIRIPENTOL
     Indication: Epilepsy
     Route: 065
     Dates: start: 20190510
  2. DIACOMIT [Suspect]
     Active Substance: STIRIPENTOL
     Indication: Epilepsy
     Dosage: 500 MG AND 1000 MG BY MOUTH IN TWO SEPARATE DOSES EACH DAY
     Route: 048
  3. CLOBAZAM [Concomitant]
     Active Substance: CLOBAZAM
     Indication: Severe myoclonic epilepsy of infancy
     Route: 065
  4. VALPROIC ACID [Concomitant]
     Active Substance: VALPROIC ACID
     Indication: Product used for unknown indication
     Route: 065
  5. Belviq [DSC] [Concomitant]
     Indication: Product used for unknown indication
     Route: 065

REACTIONS (5)
  - Eating disorder [Unknown]
  - Product preparation issue [Unknown]
  - COVID-19 [Unknown]
  - Abnormal loss of weight [Unknown]
  - Weight gain poor [Unknown]

NARRATIVE: CASE EVENT DATE: 20220101
